FAERS Safety Report 8333983 (Version 2)
Quarter: 2013Q2

REPORT INFORMATION
  Report Type: Spontaneous
  Country: US (occurrence: None)
  Receive Date: 20111130
  Receipt Date: 20120731
  Transmission Date: 20140414
  Serious: Yes (Other)
  Sender: FDA-Public Use
  Company Number: US201107004511

PATIENT
  Age: 68 Year
  Sex: Male

DRUGS (22)
  1. BYETTA [Suspect]
     Dosage: UNK
     Dates: start: 20070612, end: 20091112
  2. AMITRIPTYLINE HCL (AMITRIPTYLINE HYDROCHLORIDE) [Concomitant]
  3. VITAMIN D (EROGCALCIFEROL) [Concomitant]
  4. FENOGLIDE (FENOFIBRATE) [Concomitant]
  5. OMEGA 3 (FISH OIL) [Concomitant]
  6. VITAMIN B12 (CYANOCOBALAMIN) [Concomitant]
  7. VITAMIN C (ASCORBIC ACID) [Concomitant]
  8. ASPIRIN (ACETYLSALICYLIC ACID) [Concomitant]
  9. LISINOPRIL (LISINOPRIL) [Concomitant]
  10. CALCIUM (CALCIUM) [Concomitant]
  11. MULTIPLE VITAMINS (ASCORBIC ACID, ERGOCALCIFEROL, VOLIC ACID, RETINOL, TOCOOPHEROL, VITAMIN B NOS) [Concomitant]
  12. NOVOLOG (INSULIN ASPART) [Concomitant]
  13. TRAMADOL HYDROCHLORIDE AND ACETAMINOPHEN (PARACETAMOL, TRAMADOL HYDROCHLORIDE) [Concomitant]
  14. TESTIM (TESTOSTERONE) [Concomitant]
  15. ALLOPURINOL (ALLOPURINOL) [Concomitant]
  16. FUROSEMIDE (FUROSEMIDE) [Concomitant]
  17. MAGNESIUM (MAGNESIUM) [Concomitant]
  18. CALCIUM + VITAMIN D (CALCIUM, COLECALCIFEROL) [Concomitant]
  19. TEKTURNA (ALISKIREN FUMARATE) [Concomitant]
  20. AZOR (ALPRAZOLAM) [Concomitant]
  21. SIMCOR (SIMVSTATIN) [Concomitant]
  22. GLUCOSAMINE + CHONDROITIN (CHONDROITIN SULFATE, GLUCOSAMINE) [Concomitant]

REACTIONS (4)
  - RENAL FAILURE [None]
  - Pancreatitis [None]
  - Renal failure acute [None]
  - Off label use [None]
